FAERS Safety Report 7963509-X (Version None)
Quarter: 2011Q4

REPORT INFORMATION
  Report Type: 
  Country: None (occurrence: None)
  Receive Date: 20111208
  Receipt Date: 20111028
  Transmission Date: 20120403
  Serious: No
  Sender: FDA-Public Use
  Company Number: US-BAYER-2011-106169

PATIENT
  Age: 84 Year
  Sex: Female
  Weight: 59 kg

DRUGS (5)
  1. ALEVE (CAPLET) [Suspect]
     Indication: ARTHRITIS
     Dosage: UNK
     Route: 048
     Dates: start: 20110401
  2. DIOVAN [Concomitant]
  3. OSCAL [CALCIUM CARBONATE] [Concomitant]
  4. VITAMIN D [Concomitant]
  5. NORVASC [Concomitant]

REACTIONS (1)
  - NO ADVERSE EVENT [None]
